FAERS Safety Report 5199592-7 (Version None)
Quarter: 2007Q1

REPORT INFORMATION
  Report Type: 
  Country: None (occurrence: None)
  Receive Date: 20070105
  Receipt Date: 20070102
  Transmission Date: 20070707
  Serious: Yes (Other)
  Sender: FDA-Public Use
  Company Number: PHEH2007US00442

PATIENT
  Sex: Male

DRUGS (1)
  1. DIOVAN [Suspect]
     Dates: start: 20060801

REACTIONS (2)
  - HALLUCINATION [None]
  - PARANOIA [None]
